FAERS Safety Report 14144134 (Version 1)
Quarter: 2017Q4

REPORT INFORMATION
  Report Type: Spontaneous
  Country: GB (occurrence: GB)
  Receive Date: 20171031
  Receipt Date: 20171031
  Transmission Date: 20180321
  Serious: Yes (Other)
  Sender: FDA-Public Use
  Company Number: GB-CIPLA LTD.-2017GB18379

PATIENT

DRUGS (1)
  1. ZOLEDRONIC ACID [Suspect]
     Active Substance: ZOLEDRONIC ACID
     Indication: OSTEOGENESIS IMPERFECTA
     Dosage: 0.035 MG/KG, QD (SINGLE DOSE 4 MONTHLY)

REACTIONS (1)
  - Tibia fracture [Unknown]
